FAERS Safety Report 13581861 (Version 1)
Quarter: 2017Q2

REPORT INFORMATION
  Report Type: Spontaneous
  Country: US (occurrence: US)
  Receive Date: 20170525
  Receipt Date: 20170525
  Transmission Date: 20170830
  Serious: Yes (Death, Hospitalization)
  Sender: FDA-Public Use
  Company Number: US-FRESENIUS KABI-FK201704364

PATIENT
  Age: 24 Year
  Sex: Female

DRUGS (1)
  1. PARACETAMOL (MANUFACTURER UNKNOWN) [Suspect]
     Active Substance: ACETAMINOPHEN
     Indication: PRODUCT USED FOR UNKNOWN INDICATION
     Route: 048

REACTIONS (7)
  - Completed suicide [Fatal]
  - Coma [Unknown]
  - Acute hepatic failure [Unknown]
  - Myocardial infarction [Unknown]
  - Intentional overdose [Unknown]
  - Distributive shock [Unknown]
  - Metabolic acidosis [Unknown]
